FAERS Safety Report 24527688 (Version 1)
Quarter: 2024Q4

REPORT INFORMATION
  Report Type: Spontaneous
  Country: US (occurrence: US)
  Receive Date: 20241021
  Receipt Date: 20241021
  Transmission Date: 20250114
  Serious: No
  Sender: Haleon PLC
  Company Number: US-HALEON-2203419

PATIENT

DRUGS (1)
  1. SENSODYNE [Suspect]
     Active Substance: POTASSIUM NITRATE\SODIUM FLUORIDE
     Indication: Dental cleaning

REACTIONS (1)
  - Tooth discolouration [Recovered/Resolved]
